FAERS Safety Report 21537015 (Version 1)
Quarter: 2022Q4

REPORT INFORMATION
  Report Type: Spontaneous
  Country: US (occurrence: None)
  Receive Date: 20221101
  Receipt Date: 20221101
  Transmission Date: 20230113
  Serious: Yes (Life-Threatening, Hospitalization, Other)
  Sender: FDA-Public Use
  Company Number: None

PATIENT
  Age: 31 Year
  Sex: Female
  Weight: 63 kg

DRUGS (1)
  1. METFORMIN [Suspect]
     Active Substance: METFORMIN HYDROCHLORIDE
     Dosage: OTHER QUANTITY : 2 CAPSULE(S);?
     Route: 048
     Dates: start: 20210801, end: 20220222

REACTIONS (4)
  - Product odour abnormal [None]
  - Illness [None]
  - Abdominal pain upper [None]
  - Dyspepsia [None]

NARRATIVE: CASE EVENT DATE: 20221028
